FAERS Safety Report 7562338-9 (Version None)
Quarter: 2011Q2

REPORT INFORMATION
  Report Type: 
  Country: None (occurrence: None)
  Receive Date: 20110622
  Receipt Date: 20110613
  Transmission Date: 20111010
  Serious: Yes (Other)
  Sender: FDA-Public Use
  Company Number: JP-JNJFOC-20110607958

PATIENT
  Sex: Male

DRUGS (1)
  1. RISPERDAL [Suspect]
     Indication: NEURODEVELOPMENTAL DISORDER
     Route: 048

REACTIONS (5)
  - METABOLIC SYNDROME [None]
  - FEELING HOT [None]
  - WEIGHT INCREASED [None]
  - HEPATIC STEATOSIS [None]
  - INSOMNIA [None]
